FAERS Safety Report 14719825 (Version 1)
Quarter: 2018Q2

REPORT INFORMATION
  Report Type: Spontaneous
  Country: US (occurrence: US)
  Receive Date: 20180405
  Receipt Date: 20180405
  Transmission Date: 20180711
  Serious: Yes (Other)
  Sender: FDA-Public Use
  Company Number: US-EMD SERONO-9018069

PATIENT
  Sex: Female

DRUGS (3)
  1. GONAL-F [Suspect]
     Active Substance: FOLLITROPIN
     Indication: PRODUCT USED FOR UNKNOWN INDICATION
     Dosage: 225 UNSPECIFIED UNITS
     Route: 030
  2. GONAL-F [Suspect]
     Active Substance: FOLLITROPIN
     Dosage: 150 UNSPECIFIED UNITS
     Route: 030
  3. NOVAREL [Concomitant]
     Active Substance: CHORIOGONADOTROPIN ALFA
     Indication: PRODUCT USED FOR UNKNOWN INDICATION

REACTIONS (3)
  - Foetal death [Recovered/Resolved]
  - Multiple pregnancy [Recovered/Resolved]
  - Suicidal ideation [Unknown]
